FAERS Safety Report 21838679 (Version 2)
Quarter: 2023Q1

REPORT INFORMATION
  Report Type: Report from Study
  Country: CA (occurrence: None)
  Receive Date: 20230109
  Receipt Date: 20230203
  Transmission Date: 20230417
  Serious: Yes (Death, Other)
  Sender: FDA-Public Use
  Company Number: 2023A003140

PATIENT
  Sex: Female

DRUGS (5)
  1. IMFINZI [Suspect]
     Active Substance: DURVALUMAB
     Indication: Metastases to biliary tract
     Route: 042
     Dates: start: 20221116
  2. IMFINZI [Suspect]
     Active Substance: DURVALUMAB
     Indication: Metastases to biliary tract
     Route: 042
     Dates: start: 20221207
  3. ATORVASTATIN [Concomitant]
     Active Substance: ATORVASTATIN
  4. DEXAMETHASONE [Concomitant]
     Active Substance: DEXAMETHASONE
  5. FUROSEMIDE [Concomitant]
     Active Substance: FUROSEMIDE

REACTIONS (3)
  - Death [Fatal]
  - COVID-19 [Unknown]
  - Off label use [Unknown]
